FAERS Safety Report 11108413 (Version 3)
Quarter: 2015Q2

REPORT INFORMATION
  Report Type: Spontaneous
  Country: JP (occurrence: JP)
  Receive Date: 20150512
  Receipt Date: 20150528
  Transmission Date: 20150821
  Serious: Yes (Other)
  Sender: FDA-Public Use
  Company Number: JP-UCBSA-2015014288

PATIENT
  Age: 93 Year
  Sex: Female

DRUGS (4)
  1. KEPPRA [Suspect]
     Active Substance: LEVETIRACETAM
     Indication: SEIZURE
     Dosage: 4 G, ONCE DAILY (QD)
     Route: 048
     Dates: start: 20150429, end: 20150429
  2. EDARAVONE [Suspect]
     Active Substance: EDARAVONE
     Indication: CEREBRAL INFARCTION
     Dosage: 60MG DAILY
     Route: 042
     Dates: start: 20150428, end: 20150430
  3. KEPPRA [Suspect]
     Active Substance: LEVETIRACETAM
     Dosage: 2 G, ONCE DAILY (QD)
     Route: 048
     Dates: start: 20150430, end: 20150430
  4. MUCODYNE [Concomitant]
     Active Substance: CARBOCYSTEINE
     Indication: PRODUCT USED FOR UNKNOWN INDICATION
     Dosage: UNK
     Dates: start: 20150429

REACTIONS (1)
  - Drug-induced liver injury [Recovered/Resolved]

NARRATIVE: CASE EVENT DATE: 20150430
